FAERS Safety Report 9260019 (Version 2)
Quarter: 2013Q3

REPORT INFORMATION
  Report Type: Spontaneous
  Country: DE (occurrence: DE)
  Receive Date: 20130429
  Receipt Date: 20130705
  Transmission Date: 20140515
  Serious: Yes (Hospitalization)
  Sender: FDA-Public Use
  Company Number: DE-JNJFOC-20130415327

PATIENT
  Sex: Female
  Weight: 85 kg

DRUGS (8)
  1. XARELTO [Suspect]
     Indication: CEREBROVASCULAR ACCIDENT PROPHYLAXIS
     Route: 048
  2. XARELTO [Suspect]
     Indication: ATRIAL FIBRILLATION
     Route: 048
  3. METOPROLOL [Concomitant]
     Route: 065
  4. HCT [Concomitant]
     Route: 065
  5. ENALAPRIL [Concomitant]
     Route: 065
  6. PRADAXA [Concomitant]
     Route: 065
  7. BENALAPRIL [Concomitant]
     Route: 065
  8. EUTHYROX [Concomitant]
     Route: 065

REACTIONS (2)
  - Embolic stroke [Recovering/Resolving]
  - Drug ineffective [Unknown]
